FAERS Safety Report 8056256-X (Version None)
Quarter: 2012Q1

REPORT INFORMATION
  Report Type: 
  Country: None (occurrence: None)
  Receive Date: 20120119
  Receipt Date: 20120117
  Transmission Date: 20120608
  Serious: Yes (Other)
  Sender: FDA-Public Use
  Company Number: RU-BAYER-2011-119123

PATIENT
  Age: 24 Year
  Sex: Female

DRUGS (1)
  1. YAZ [Suspect]
     Indication: CONTRACEPTION

REACTIONS (7)
  - BRONCHITIS [None]
  - FEELING ABNORMAL [None]
  - MENSTRUATION DELAYED [None]
  - DIZZINESS [None]
  - ABNORMAL WITHDRAWAL BLEEDING [None]
  - HEADACHE [None]
  - LOSS OF CONSCIOUSNESS [None]
